FAERS Safety Report 6129523-4 (Version None)
Quarter: 2009Q1

REPORT INFORMATION
  Report Type: 
  Country: None (occurrence: None)
  Receive Date: 20090324
  Receipt Date: 20090312
  Transmission Date: 20090719
  Serious: Yes (Hospitalization)
  Sender: FDA-Public Use
  Company Number: PHHY2009FR09201

PATIENT
  Sex: Female

DRUGS (3)
  1. NISIS [Suspect]
     Indication: HYPERTENSION
     Dosage: 80 MG, QD
     Route: 048
     Dates: end: 20090114
  2. SPIRONOLACTONE [Suspect]
     Indication: HYPERTENSION
     Dosage: 50 MG, QD
     Route: 048
     Dates: end: 20090114
  3. OXYCONTIN [Suspect]
     Indication: BACK PAIN
     Route: 048

REACTIONS (9)
  - ALTERED STATE OF CONSCIOUSNESS [None]
  - ASTHENIA [None]
  - BLOOD CREATININE INCREASED [None]
  - HAEMODIALYSIS [None]
  - HYPERKALAEMIA [None]
  - HYPOTENSION [None]
  - OVERDOSE [None]
  - RENAL FAILURE ACUTE [None]
  - SOMNOLENCE [None]
